FAERS Safety Report 4975340-8 (Version None)
Quarter: 2006Q2

REPORT INFORMATION
  Report Type: 
  Country: None (occurrence: None)
  Receive Date: 20060418
  Receipt Date: 20060406
  Transmission Date: 20061013
  Serious: Yes (Other)
  Sender: FDA-Public Use
  Company Number: US-MERCK-0604USA00966

PATIENT
  Age: 59 Year
  Sex: Female

DRUGS (2)
  1. VIOXX [Suspect]
     Indication: PAIN
     Route: 048
     Dates: start: 20030101, end: 20040101
  2. [THERAPY UNSPECIFIED] [Concomitant]
     Route: 065

REACTIONS (3)
  - ANEURYSM [None]
  - EAR NEOPLASM [None]
  - MYOCARDIAL INFARCTION [None]
